FAERS Safety Report 19299520 (Version 1)
Quarter: 2021Q2

REPORT INFORMATION
  Report Type: Spontaneous
  Country: US (occurrence: US)
  Receive Date: 20210524
  Receipt Date: 20210524
  Transmission Date: 20210717
  Serious: No
  Sender: FDA-Public Use
  Company Number: None

PATIENT
  Age: 73 Year
  Sex: Male
  Weight: 103.5 kg

DRUGS (6)
  1. LISINOPRIL. [Concomitant]
     Active Substance: LISINOPRIL
  2. ELIQUIS [Concomitant]
     Active Substance: APIXABAN
  3. AMIODARONE [Suspect]
     Active Substance: AMIODARONE
     Dosage: ?          QUANTITY:1 TABLET(S);?
     Route: 048
  4. ATORVASTATIN [Concomitant]
     Active Substance: ATORVASTATIN
  5. LASIX [Concomitant]
     Active Substance: FUROSEMIDE
  6. PLAVIX [Concomitant]
     Active Substance: CLOPIDOGREL BISULFATE

REACTIONS (3)
  - Irritability [None]
  - Insomnia [None]
  - Hallucination [None]

NARRATIVE: CASE EVENT DATE: 20200723
